FAERS Safety Report 6069618-7 (Version None)
Quarter: 2009Q1

REPORT INFORMATION
  Report Type: 
  Country: None (occurrence: None)
  Receive Date: 20090209
  Receipt Date: 20090204
  Transmission Date: 20090719
  Serious: Yes (Hospitalization)
  Sender: FDA-Public Use
  Company Number: AT-BRISTOL-MYERS SQUIBB COMPANY-14492243

PATIENT
  Age: 66 Year
  Sex: Male
  Weight: 90 kg

DRUGS (3)
  1. CISPLATIN [Suspect]
     Indication: NON-SMALL CELL LUNG CANCER
     Dosage: ON DAY 1 AND DAY 2. RECEIVED ON DAY 8(30JAN09) AND PLANNED TO BE ADMINISTERED ON DAY 15 (06FEB09)
     Route: 042
     Dates: start: 20090123
  2. CETUXIMAB [Suspect]
     Indication: NON-SMALL CELL LUNG CANCER
     Dosage: CETUXIMAB 5MG/ML, RECEIVED ON DAY 8(30JAN09) AND PLANNED TO BE ADMINISTERED ON DAY 15 (06FEB09)
     Route: 042
     Dates: start: 20090123
  3. DOCETAXEL [Suspect]
     Indication: NON-SMALL CELL LUNG CANCER
     Dosage: ONDAY 1. RECEIVED ON DAY 8(30JAN09) AND PLANNED TO BE ADMINISTERED ON DAY 15 (06FEB09)
     Route: 042
     Dates: start: 20090123

REACTIONS (1)
  - MUCOSAL INFLAMMATION [None]
